FAERS Safety Report 8739788 (Version 5)
Quarter: 2017Q3

REPORT INFORMATION
  Report Type: Spontaneous
  Country: US (occurrence: US)
  Receive Date: 20120823
  Receipt Date: 20170807
  Transmission Date: 20171128
  Serious: Yes (Life-Threatening, Hospitalization, Disabling, Other)
  Sender: FDA-Public Use
  Company Number: US-009507513-1208USA008339

PATIENT
  Age: 86 Year
  Sex: Female

DRUGS (7)
  1. EXELON [Concomitant]
     Active Substance: RIVASTIGMINE TARTRATE
  2. ASPIRIN. [Concomitant]
     Active Substance: ASPIRIN
     Dosage: UNK, QD
  3. HYDRALAZINE [Concomitant]
     Active Substance: HYDRALAZINE HYDROCHLORIDE
  4. PRAVACHOL [Concomitant]
     Active Substance: PRAVASTATIN SODIUM
  5. JANUVIA [Concomitant]
     Active Substance: SITAGLIPTIN PHOSPHATE
     Route: 048
  6. METFORMIN [Concomitant]
     Active Substance: METFORMIN HYDROCHLORIDE
  7. FOSAMAX [Suspect]
     Active Substance: ALENDRONATE SODIUM
     Indication: OSTEOPOROSIS
     Dosage: 70 MG, QW
     Route: 048

REACTIONS (8)
  - Delirium [Unknown]
  - Mouth injury [Recovered/Resolved]
  - Hypertensive emergency [Recovered/Resolved]
  - Drug administration error [Unknown]
  - Stomatitis [Recovered/Resolved]
  - Oesophageal motility disorder [Unknown]
  - Dehydration [Unknown]
  - Disorientation [Unknown]

NARRATIVE: CASE EVENT DATE: 201109
